FAERS Safety Report 6371143-0 (Version None)
Quarter: 2009Q3

REPORT INFORMATION
  Report Type: 
  Country: None (occurrence: None)
  Receive Date: 20090923
  Receipt Date: 20090917
  Transmission Date: 20100115
  Serious: Yes (Life-Threatening)
  Sender: FDA-Public Use
  Company Number: JP-MERCK-0909USA01544

PATIENT
  Age: 59 Year
  Sex: Male
  Weight: 68 kg

DRUGS (2)
  1. PROPECIA [Suspect]
     Indication: ANDROGENETIC ALOPECIA
     Route: 048
     Dates: start: 20090820, end: 20090823
  2. AMLODIPINE [Concomitant]
     Route: 048

REACTIONS (4)
  - DYSPEPSIA [None]
  - NAUSEA [None]
  - PYREXIA [None]
  - VOMITING [None]
